FAERS Safety Report 5630255-7 (Version None)
Quarter: 2008Q1

REPORT INFORMATION
  Report Type: 
  Country: None (occurrence: None)
  Receive Date: 20080213
  Receipt Date: 20080204
  Transmission Date: 20080703
  Serious: Yes (Death)
  Sender: FDA-Public Use
  Company Number: 2008-01074

PATIENT
  Age: 21 Year
  Sex: Male

DRUGS (7)
  1. ISOFLURANE [Suspect]
     Route: 055
  2. FENTANYL CITRATE                              (FENTANYL CITRATE) INJEC [Suspect]
  3. ALPROSTADIL [Suspect]
  4. SUCCINYLCHOLINE CHLORIDE [Suspect]
  5. NITRIC OXIDE [Suspect]
  6. PROPOFOL [Suspect]
  7. PAPAVERINE                         (PAPAVERINE) [Suspect]

REACTIONS (1)
  - CARDIO-RESPIRATORY ARREST [None]
